FAERS Safety Report 24337381 (Version 1)
Quarter: 2024Q3

REPORT INFORMATION
  Report Type: Spontaneous
  Country: NO (occurrence: NO)
  Receive Date: 20240919
  Receipt Date: 20240919
  Transmission Date: 20241017
  Serious: No
  Sender: ROCHE
  Company Number: None

PATIENT
  Age: 30 Year
  Sex: Female
  Weight: 56.0 kg

DRUGS (1)
  1. TAMIFLU [Suspect]
     Active Substance: OSELTAMIVIR PHOSPHATE
     Indication: Influenza
     Dosage: TOOK TWO DOSES, ONE FORENOON AND ONE IN THE EVENING.
     Route: 065
     Dates: start: 20230226, end: 20230226

REACTIONS (2)
  - Wound [Unknown]
  - Lip blister [Recovering/Resolving]

NARRATIVE: CASE EVENT DATE: 20230227
